FAERS Safety Report 4861299-0 (Version None)
Quarter: 2005Q4

REPORT INFORMATION
  Report Type: 
  Country: None (occurrence: None)
  Receive Date: 20051216
  Receipt Date: 20051122
  Transmission Date: 20060501
  Serious: Yes (Life-Threatening, Hospitalization, Other)
  Sender: FDA-Public Use
  Company Number: 200514162GDS

PATIENT
  Sex: Female

DRUGS (4)
  1. NIFEDIPINE [Suspect]
     Indication: ILL-DEFINED DISORDER
  2. ATENOLOL [Suspect]
     Indication: HYPERTENSION
  3. HYDROXYCHLOROQUINE SULFATE [Suspect]
     Indication: ILL-DEFINED DISORDER
  4. RAMIPRIL [Suspect]
     Indication: HYPERTENSION

REACTIONS (6)
  - BLOOD BILIRUBIN INCREASED [None]
  - BLOOD CREATININE INCREASED [None]
  - BLOOD UREA INCREASED [None]
  - JAUNDICE NEONATAL [None]
  - NEONATAL RESPIRATORY DISTRESS SYNDROME [None]
  - RENAL FUNCTION TEST ABNORMAL [None]
